FAERS Safety Report 16245932 (Version 1)
Quarter: 2019Q2

REPORT INFORMATION
  Report Type: Spontaneous
  Country: FI (occurrence: FI)
  Receive Date: 20190426
  Receipt Date: 20190426
  Transmission Date: 20190711
  Serious: Yes (Hospitalization)
  Sender: FDA-Public Use
  Company Number: FI-NOVOPROD-646241

PATIENT
  Age: 12 Year
  Sex: Female

DRUGS (2)
  1. TRESIBA [Suspect]
     Active Substance: INSULIN DEGLUDEC
     Indication: TYPE 1 DIABETES MELLITUS
     Dosage: UNK
     Route: 065
     Dates: start: 20190125
  2. NOVORAPID [Concomitant]
     Active Substance: INSULIN ASPART
     Indication: TYPE 1 DIABETES MELLITUS
     Dosage: AT MEAL TIMES
     Dates: start: 201311

REACTIONS (2)
  - Gastrointestinal motility disorder [Recovered/Resolved]
  - Gastroenteritis [Recovered/Resolved]
